FAERS Safety Report 9494082 (Version 1)
Quarter: 2013Q3

REPORT INFORMATION
  Report Type: Spontaneous
  Country: CN (occurrence: CN)
  Receive Date: 20130903
  Receipt Date: 20130903
  Transmission Date: 20140515
  Serious: Yes (Other)
  Sender: FDA-Public Use
  Company Number: CN-JNJFOC-20130900481

PATIENT
  Age: 9 Year
  Sex: Female
  Weight: 30 kg

DRUGS (1)
  1. BAND-AID PATCH [Suspect]
     Indication: WOUND
     Route: 003
     Dates: start: 20090604, end: 20090604

REACTIONS (1)
  - Anaphylactoid reaction [Recovering/Resolving]
